FAERS Safety Report 7393566-3 (Version None)
Quarter: 2011Q2

REPORT INFORMATION
  Report Type: 
  Country: None (occurrence: None)
  Receive Date: 20110405
  Receipt Date: 20110331
  Transmission Date: 20111010
  Serious: Yes (Death)
  Sender: FDA-Public Use
  Company Number: US-BAYER-2011-028799

PATIENT
  Sex: Male

DRUGS (1)
  1. NEXAVAR [Suspect]
     Indication: RETROPERITONEAL CANCER
     Dosage: 400 MG, BID
     Route: 048
     Dates: start: 20110207

REACTIONS (1)
  - DEATH [None]
